FAERS Safety Report 8674912 (Version 2)
Quarter: 2013Q3

REPORT INFORMATION
  Report Type: Spontaneous
  Country: ES (occurrence: ES)
  Receive Date: 20120720
  Receipt Date: 20130819
  Transmission Date: 20140515
  Serious: Yes (Hospitalization, Other)
  Sender: FDA-Public Use
  Company Number: ES-GENZYME-THYM-1003337

PATIENT
  Age: 16 Year
  Sex: Female

DRUGS (11)
  1. THYMOGLOBULINE [Suspect]
     Indication: CORD BLOOD TRANSPLANT THERAPY
     Dosage: 112 MG, QD
     Route: 042
     Dates: start: 20120420, end: 20120422
  2. FLUDARABINE [Concomitant]
     Indication: CORD BLOOD TRANSPLANT THERAPY
     Dosage: UNK, QD
     Route: 042
     Dates: start: 20120419, end: 20120421
  3. BUSULFAN [Concomitant]
     Indication: CORD BLOOD TRANSPLANT THERAPY
     Dosage: UNK, QD
     Route: 042
     Dates: start: 20120419, end: 20120421
  4. THIOTEPA [Concomitant]
     Indication: CORD BLOOD TRANSPLANT THERAPY
     Dosage: UNK, QD
     Route: 042
     Dates: start: 20120417, end: 20120418
  5. PIPERACILLIN [Concomitant]
     Indication: PRODUCT USED FOR UNKNOWN INDICATION
     Dosage: UNK
     Route: 065
  6. TAZOBACTAM [Concomitant]
     Indication: PRODUCT USED FOR UNKNOWN INDICATION
     Dosage: UNK
     Route: 065
  7. FLUCONAZOL [Concomitant]
     Indication: PRODUCT USED FOR UNKNOWN INDICATION
     Dosage: UNK
     Route: 065
  8. METHYLPREDNISOLONE [Concomitant]
     Indication: PREMEDICATION
     Dosage: UNK
     Route: 065
  9. DEXCHLORPHENIRAMINE [Concomitant]
     Indication: PREMEDICATION
     Dosage: UNK
     Route: 065
  10. FLIUD THERAPY [Concomitant]
     Indication: PRODUCT USED FOR UNKNOWN INDICATION
     Dosage: UNK
     Route: 065
  11. FLIUD THERAPY [Concomitant]
     Dosage: UNK, DOSE REDUCED
     Route: 065

REACTIONS (5)
  - Atrial flutter [Recovered/Resolved]
  - Angina pectoris [Recovered/Resolved]
  - Generalised oedema [Recovered/Resolved]
  - Rash [Recovered/Resolved]
  - Pyrexia [Recovered/Resolved]
